FAERS Safety Report 9412730 (Version 1)
Quarter: 2013Q3

REPORT INFORMATION
  Report Type: Spontaneous
  Country: AT (occurrence: AT)
  Receive Date: 20130722
  Receipt Date: 20130722
  Transmission Date: 20140515
  Serious: Yes (Death, Other)
  Sender: FDA-Public Use
  Company Number: AT-JNJFOC-20130708693

PATIENT
  Age: 71 Year
  Sex: Female

DRUGS (4)
  1. CLADRIBINE [Suspect]
     Indication: SYSTEMIC MASTOCYTOSIS
     Dosage: 5 CONSECUTIVE DAYS, RECEIVED 6 CYCLES OF CLADRIBINE, CYCLES WERE ADMINISTERED EVERY 4 TO 6 WEEKS
     Route: 042
     Dates: start: 200603
  2. PREDNISOLONE [Suspect]
     Indication: SYSTEMIC MASTOCYTOSIS
     Dosage: PER OS DAILY
     Route: 048
     Dates: start: 200506
  3. PREDNISOLONE [Suspect]
     Indication: SYSTEMIC MASTOCYTOSIS
     Route: 048
  4. SPRYCEL [Suspect]
     Indication: SYSTEMIC MASTOCYTOSIS
     Dosage: PER OS DAILY
     Route: 048
     Dates: start: 200708

REACTIONS (5)
  - Disease progression [Fatal]
  - Subarachnoid haemorrhage [Fatal]
  - Thrombocytopenia [Unknown]
  - Anaemia [Unknown]
  - Drug ineffective [Unknown]
